FAERS Safety Report 9526642 (Version 1)
Quarter: 2013Q1

REPORT INFORMATION
  Report Type: Spontaneous
  Country: US (occurrence: None)
  Receive Date: 20130305
  Receipt Date: 20130305
  Transmission Date: 20140127
  Serious: Yes (Other)
  Sender: FDA-Public Use
  Company Number: 163-21880-12031314

PATIENT
  Age: 81 Year
  Sex: Male

DRUGS (13)
  1. REVLIMID (LENALIDOMIDE) (15 MILLIGRAM, CAPSULES) [Suspect]
     Indication: PLASMA CELL MYELOMA
     Dosage: 15 MG, D1-21, PO
     Dates: start: 20120210
  2. LASIX (FUROSEMIDE) [Concomitant]
  3. SIMVASTATIN (SIMVASTATIN) [Concomitant]
  4. ALLOPURINOL (ALLOPURINOL) [Concomitant]
  5. GABAPENTIN (GABAPENTIN) [Concomitant]
  6. FLOMAX (TAMSULOSIN HYDROCHLORIDE) [Concomitant]
  7. DOCUSATE (DOCUSATE) [Concomitant]
  8. KLOR-CON (POTASSIUM CHLORIDE) [Concomitant]
  9. DECADRON (DEXAMETHASONE) [Concomitant]
  10. DIFLUCAN (FLUCONAZOLE) [Concomitant]
  11. VALTREX (VALACICLOVIR HYDROCHLORIDE) [Concomitant]
  12. ECOTRIN (ACETYLSALICYLIC ACID) [Concomitant]
  13. PROTONIX [Concomitant]

REACTIONS (1)
  - Rash generalised [None]
